FAERS Safety Report 8820928 (Version 6)
Quarter: 2013Q4

REPORT INFORMATION
  Report Type: Spontaneous
  Country: US (occurrence: US)
  Receive Date: 20121002
  Receipt Date: 20131022
  Transmission Date: 20140711
  Serious: Yes (Hospitalization, Disabling, Other)
  Sender: FDA-Public Use
  Company Number: US-009507513-1209USA010246

PATIENT
  Sex: Female

DRUGS (3)
  1. FOSAMAX [Suspect]
     Indication: OSTEOPENIA
     Dosage: 70 MG, UNK
     Route: 048
     Dates: start: 200108, end: 201009
  2. FOSAMAX [Suspect]
     Indication: PROPHYLAXIS
  3. ZITHROMAX [Concomitant]
     Indication: INFECTION
     Dosage: UNK
     Dates: start: 200012, end: 200508

REACTIONS (30)
  - Femur fracture [Unknown]
  - Intramedullary rod insertion [Unknown]
  - Femur fracture [Unknown]
  - Knee arthroplasty [Unknown]
  - Knee arthroplasty [Unknown]
  - Foot fracture [Unknown]
  - Dental implantation [Unknown]
  - Fall [Unknown]
  - Adverse event [Unknown]
  - Scoliosis [Unknown]
  - Exostosis [Unknown]
  - Foot fracture [Unknown]
  - Aortic arteriosclerosis [Unknown]
  - Pelvic pain [Unknown]
  - Osteoporosis [Unknown]
  - Osteoarthritis [Unknown]
  - Weight increased [Unknown]
  - Ligament sprain [Unknown]
  - Contusion [Unknown]
  - Contusion [Unknown]
  - Appendicectomy [Unknown]
  - Tonsillectomy [Unknown]
  - Infection [Unknown]
  - Pain [Unknown]
  - Dry skin [Unknown]
  - Dry skin [Unknown]
  - Pruritus [Unknown]
  - Pruritus [Unknown]
  - Local swelling [Unknown]
  - Joint swelling [Unknown]
